FAERS Safety Report 6234629-5 (Version None)
Quarter: 2009Q2

REPORT INFORMATION
  Report Type: 
  Country: None (occurrence: None)
  Receive Date: 20090616
  Receipt Date: 20090616
  Transmission Date: 20091009
  Serious: No
  Sender: FDA-Public Use
  Company Number: None

PATIENT
  Age: 45 Year
  Sex: Female
  Weight: 114.3065 kg

DRUGS (1)
  1. FLAGYL [Suspect]
     Indication: UTERINE INFECTION
     Dosage: 1 PILL TWICW DAILY PO
     Route: 048
     Dates: start: 20090611, end: 20090612

REACTIONS (4)
  - COLD SWEAT [None]
  - DIZZINESS [None]
  - GAIT DISTURBANCE [None]
  - VOMITING [None]
